FAERS Safety Report 24000578 (Version 1)
Quarter: 2024Q2

REPORT INFORMATION
  Report Type: Spontaneous
  Country: US (occurrence: US)
  Receive Date: 20240621
  Receipt Date: 20240621
  Transmission Date: 20240716
  Serious: Yes (Other)
  Sender: FDA-Public Use
  Company Number: US-ALAT_HILIT-192

PATIENT
  Age: 64 Year
  Sex: Female

DRUGS (1)
  1. REMERON [Suspect]
     Active Substance: MIRTAZAPINE
     Indication: Decreased appetite
     Dosage: 7.5MG, NIGHTLY SCHEDULE
     Route: 048

REACTIONS (1)
  - Ventricular arrhythmia [Recovered/Resolved]
